FAERS Safety Report 4333701-4 (Version None)
Quarter: 2004Q2

REPORT INFORMATION
  Report Type: 
  Country: None (occurrence: None)
  Receive Date: 20040406
  Receipt Date: 20040406
  Transmission Date: 20050107
  Serious: Yes (Other)
  Sender: FDA-Public Use
  Company Number: None

PATIENT
  Age: 88 Year
  Sex: Female
  Weight: 78.9259 kg

DRUGS (8)
  1. AMARYL [Suspect]
     Indication: DIABETES MELLITUS
     Dosage: 4 MG PO DAILY
     Route: 048
     Dates: start: 20040106
  2. AMARYL [Suspect]
     Indication: DIABETES MELLITUS
     Dosage: 4 MG PO DAILY
     Route: 048
     Dates: start: 20040326
  3. ATENOLOL [Concomitant]
  4. LEVOTHROID [Concomitant]
  5. METFORMIN [Concomitant]
  6. HYDROCHLOROTHIAZIDE [Concomitant]
  7. COZAAR [Concomitant]
  8. STOOL SOFTENER [Concomitant]

REACTIONS (2)
  - ERYTHEMA [None]
  - RASH [None]
